FAERS Safety Report 14880136 (Version 2)
Quarter: 2018Q2

REPORT INFORMATION
  Report Type: Report from Study
  Country: None (occurrence: ES)
  Receive Date: 20180511
  Receipt Date: 20180608
  Transmission Date: 20180711
  Serious: Yes (Hospitalization, Other)
  Sender: FDA-Public Use
  Company Number: ES-ABBVIE-18K-144-2352320-00

PATIENT
  Age: 69 Year
  Sex: Male

DRUGS (1)
  1. DUODOPA [Suspect]
     Active Substance: CARBIDOPA\LEVODOPA
     Indication: PARKINSON^S DISEASE
     Route: 050
     Dates: start: 20160427

REACTIONS (9)
  - Intestinal obstruction [Not Recovered/Not Resolved]
  - Postoperative wound infection [Recovering/Resolving]
  - Abscess [Unknown]
  - Device related infection [Recovering/Resolving]
  - Choking [Recovered/Resolved]
  - Constipation [Recovered/Resolved]
  - Intestinal obstruction [Recovered/Resolved]
  - Faecaloma [Recovered/Resolved]
  - Intervertebral discitis [Unknown]

NARRATIVE: CASE EVENT DATE: 2018
